FAERS Safety Report 5128146-3 (Version None)
Quarter: 2006Q4

REPORT INFORMATION
  Report Type: 
  Country: None (occurrence: None)
  Receive Date: 20061017
  Receipt Date: 20060908
  Transmission Date: 20070319
  Serious: Yes (Other)
  Sender: FDA-Public Use
  Company Number: PHFR2006GB02786

PATIENT
  Sex: Male

DRUGS (1)
  1. ZOMETA [Suspect]
     Route: 065

REACTIONS (4)
  - OSTEONECROSIS [None]
  - PAIN IN JAW [None]
  - RENAL CELL CARCINOMA STAGE UNSPECIFIED [None]
  - TOOTH EXTRACTION [None]
